FAERS Safety Report 16955941 (Version 1)
Quarter: 2019Q4

REPORT INFORMATION
  Report Type: Report from Study
  Country: DE (occurrence: DE)
  Receive Date: 20191024
  Receipt Date: 20191024
  Transmission Date: 20200122
  Serious: Yes (Death, Life-Threatening, Hospitalization)
  Sender: FDA-Public Use
  Company Number: PHHO2019DE003776

PATIENT
  Age: 74 Year
  Sex: Male
  Weight: 101 kg

DRUGS (8)
  1. XARELTO [Concomitant]
     Active Substance: RIVAROXABAN
     Indication: PERIPHERAL VENOUS DISEASE
     Dosage: 20 MG, QD
     Route: 048
     Dates: start: 201802, end: 20190401
  2. DABRAFENIB [Suspect]
     Active Substance: DABRAFENIB
     Indication: METASTATIC MALIGNANT MELANOMA
     Dosage: 150 MG, BID
     Route: 048
     Dates: start: 20180418, end: 20190330
  3. ATORVASTATIN [Concomitant]
     Active Substance: ATORVASTATIN
     Indication: TACHYCARDIA
     Dosage: 40 MG, QD
     Route: 048
     Dates: start: 20190219, end: 20190401
  4. PLACEBO [Suspect]
     Active Substance: UNSPECIFIED INGREDIENT
     Indication: METASTATIC MALIGNANT MELANOMA
     Dosage: 400 MG, Q4W
     Route: 042
     Dates: start: 20180418, end: 20190320
  5. TRAMETINIB [Suspect]
     Active Substance: TRAMETINIB
     Indication: METASTATIC MALIGNANT MELANOMA
     Dosage: 2 MG, QD
     Route: 048
     Dates: start: 20180418, end: 20190330
  6. FLECAINIDE ACETATE. [Concomitant]
     Active Substance: FLECAINIDE ACETATE
     Indication: ATRIAL FIBRILLATION
     Dosage: 200 MG, QD
     Route: 048
     Dates: start: 20190219, end: 20190401
  7. TORASEMID [Concomitant]
     Active Substance: TORSEMIDE
     Indication: HYPERTENSION
     Dosage: 40 MG, QD
     Route: 048
     Dates: start: 20120618, end: 20190401
  8. METOPROLOL RETARD [Concomitant]
     Active Substance: METOPROLOL TARTRATE
     Indication: HYPERTENSION
     Dosage: 190 MG, QD
     Route: 048
     Dates: start: 20181204, end: 20190401

REACTIONS (6)
  - Multiple organ dysfunction syndrome [Fatal]
  - Hypothyroidism [Not Recovered/Not Resolved]
  - Generalised oedema [Not Recovered/Not Resolved]
  - Cardiac disorder [Not Recovered/Not Resolved]
  - Aphasia [Not Recovered/Not Resolved]
  - Bradycardia [Not Recovered/Not Resolved]

NARRATIVE: CASE EVENT DATE: 20190401
